FAERS Safety Report 5476141-7 (Version None)
Quarter: 2007Q4

REPORT INFORMATION
  Report Type: 
  Country: None (occurrence: None)
  Receive Date: 20071003
  Receipt Date: 20070821
  Transmission Date: 20080405
  Serious: Yes (Hospitalization)
  Sender: FDA-Public Use
  Company Number: AU-JNJFOC-20070803179

PATIENT
  Age: 43 Year
  Sex: Male
  Weight: 84.5 kg

DRUGS (9)
  1. DOXORUBICIN HCL [Suspect]
     Indication: GLIOBLASTOMA MULTIFORME
     Route: 042
  2. TEMOZOLOMIDE [Suspect]
     Indication: GLIOBLASTOMA MULTIFORME
     Route: 048
  3. AMLODIPINE [Concomitant]
     Indication: BLOOD CHOLESTEROL INCREASED
     Route: 048
  4. AMLODIPINE [Concomitant]
     Indication: BLOOD PRESSURE
     Route: 048
  5. ATORVASTATIN CALCIUM [Concomitant]
     Route: 048
  6. INDAPAMIDE [Concomitant]
     Indication: POLYURIA
     Route: 048
  7. ASPIRIN [Concomitant]
     Indication: THROMBOSIS PROPHYLAXIS
     Route: 048
  8. PERINDOPRIL ERBUMINE [Concomitant]
     Indication: BLOOD PRESSURE
     Route: 048
  9. DEXAMETHASONE 0.5MG TAB [Concomitant]
     Route: 048

REACTIONS (5)
  - ASTHENIA [None]
  - DEHYDRATION [None]
  - FATIGUE [None]
  - MUCOSAL INFLAMMATION [None]
  - OESOPHAGEAL CANDIDIASIS [None]
